FAERS Safety Report 14383066 (Version 4)
Quarter: 2018Q1

REPORT INFORMATION
  Report Type: Spontaneous
  Country: US (occurrence: US)
  Receive Date: 20180114
  Receipt Date: 20180206
  Transmission Date: 20180509
  Serious: Yes (Hospitalization, Other)
  Sender: FDA-Public Use
  Company Number: US-B.I. PHARMACEUTICALS,INC./RIDGEFIELD-2018-BI-001159

PATIENT
  Sex: Female

DRUGS (2)
  1. PRADAXA [Suspect]
     Active Substance: DABIGATRAN ETEXILATE MESYLATE
     Indication: ATRIAL FIBRILLATION
     Route: 065
     Dates: start: 2010
  2. PRADAXA [Suspect]
     Active Substance: DABIGATRAN ETEXILATE MESYLATE
     Route: 048
     Dates: start: 2015

REACTIONS (5)
  - Atrial fibrillation [Recovered/Resolved]
  - Macular degeneration [Not Recovered/Not Resolved]
  - Cataract [Not Recovered/Not Resolved]
  - Fall [Recovered/Resolved]
  - Spinal fracture [Recovered/Resolved]

NARRATIVE: CASE EVENT DATE: 2015
